FAERS Safety Report 18347835 (Version 1)
Quarter: 2020Q4

REPORT INFORMATION
  Report Type: Spontaneous
  Country: US (occurrence: US)
  Receive Date: 20201006
  Receipt Date: 20201006
  Transmission Date: 20210114
  Serious: Yes (Congenital Anomaly, Other)
  Sender: FDA-Public Use
  Company Number: US-SA-2020SA269392

PATIENT

DRUGS (1)
  1. CLOMID [Suspect]
     Active Substance: CLOMIPHENE CITRATE
     Indication: INFERTILITY FEMALE
     Route: 064

REACTIONS (7)
  - Drug exposure before pregnancy [Unknown]
  - Learning disability [Unknown]
  - Amnesia [Unknown]
  - Aggression [Unknown]
  - Developmental delay [Unknown]
  - Unevaluable event [Unknown]
  - Epilepsy congenital [Unknown]
